FAERS Safety Report 13279879 (Version 1)
Quarter: 2017Q1

REPORT INFORMATION
  Report Type: Spontaneous
  Country: US (occurrence: US)
  Receive Date: 20170228
  Receipt Date: 20170228
  Transmission Date: 20170428
  Serious: No
  Sender: FDA-Public Use
  Company Number: None

PATIENT
  Sex: Male
  Weight: 99.88 kg

DRUGS (1)
  1. GENERIC ZOLOFT, 100MG [Suspect]
     Active Substance: SERTRALINE HYDROCHLORIDE
     Indication: ANXIETY
     Route: 048
     Dates: start: 20110101, end: 20120101

REACTIONS (3)
  - Product substitution issue [None]
  - Gastrointestinal disorder [None]
  - Respiratory rate increased [None]
